FAERS Safety Report 7763269-1 (Version None)
Quarter: 2011Q3

REPORT INFORMATION
  Report Type: 
  Country: None (occurrence: None)
  Receive Date: 20110920
  Receipt Date: 20110909
  Transmission Date: 20111222
  Serious: Yes (Hospitalization)
  Sender: FDA-Public Use
  Company Number: FR-JNJFOC-20110905105

PATIENT
  Age: 41 Year
  Sex: Female

DRUGS (8)
  1. REMICADE [Suspect]
     Indication: PSORIATIC ARTHROPATHY
     Route: 042
     Dates: start: 20090331, end: 20110301
  2. METHOTREXATE SODIUM [Suspect]
     Indication: PSORIATIC ARTHROPATHY
     Route: 058
  3. LAMALINE [Concomitant]
     Route: 065
  4. CYMBALTA [Suspect]
     Indication: PSORIATIC ARTHROPATHY
     Route: 048
  5. SPECIAFOLDINE [Concomitant]
     Route: 065
  6. MYOLASTAN [Suspect]
     Indication: PSORIATIC ARTHROPATHY
     Route: 048
  7. NEXIUM [Suspect]
     Indication: PSORIATIC ARTHROPATHY
     Route: 048
  8. KETOPROFEN [Suspect]
     Indication: PSORIATIC ARTHROPATHY
     Route: 048

REACTIONS (7)
  - PALLOR [None]
  - FALL [None]
  - STRABISMUS [None]
  - GAIT DISTURBANCE [None]
  - MALAISE [None]
  - MUSCLE SPASTICITY [None]
  - ASTHENIA [None]
